FAERS Safety Report 17021578 (Version 2)
Quarter: 2019Q4

REPORT INFORMATION
  Report Type: Spontaneous
  Country: US (occurrence: US)
  Receive Date: 20191112
  Receipt Date: 20191230
  Transmission Date: 20200122
  Serious: No
  Sender: FDA-Public Use
  Company Number: US-PFIZER INC-2019485353

PATIENT
  Age: 81 Year
  Sex: Male
  Weight: 60.78 kg

DRUGS (2)
  1. VIAGRA [Suspect]
     Active Substance: SILDENAFIL CITRATE
     Indication: ERECTION INCREASED
     Dosage: UNK UNK, AS NEEDED(1/2 TABLET TAKEN BY MOUTH ONCE DAILY WITH WATER OR TEA OR WHATEVER)
     Route: 048
  2. VIAGRA [Suspect]
     Active Substance: SILDENAFIL CITRATE
     Indication: ANDROGEN DEFICIENCY
     Dosage: 100 MG, AS NEEDED (ONCE DAILY AS NEEDED)
     Route: 048

REACTIONS (3)
  - Weight decreased [Unknown]
  - Therapeutic product effect incomplete [Unknown]
  - Body height decreased [Unknown]
